FAERS Safety Report 6429057-3 (Version None)
Quarter: 2009Q4

REPORT INFORMATION
  Report Type: 
  Country: None (occurrence: None)
  Receive Date: 20091105
  Receipt Date: 20091031
  Transmission Date: 20100525
  Serious: Yes (Death)
  Sender: FDA-Public Use
  Company Number: US-CELGENEUS-163-21880-09110018

PATIENT
  Sex: Female

DRUGS (2)
  1. REVLIMID [Suspect]
     Indication: MULTIPLE MYELOMA
     Route: 048
     Dates: start: 20090301, end: 20090101
  2. REVLIMID [Suspect]
     Route: 048
     Dates: start: 20081001

REACTIONS (2)
  - DISEASE COMPLICATION [None]
  - MULTIPLE MYELOMA [None]
